FAERS Safety Report 14403179 (Version 1)
Quarter: 2018Q1

REPORT INFORMATION
  Report Type: Report from Study
  Country: None (occurrence: BR)
  Receive Date: 20180117
  Receipt Date: 20180117
  Transmission Date: 20180509
  Serious: Yes (Hospitalization)
  Sender: FDA-Public Use
  Company Number: BR-ABBVIE-18P-020-2221794-00

PATIENT
  Age: 7 Month
  Sex: Female
  Weight: 6.7 kg

DRUGS (2)
  1. LOPINAVIR/RITONAVIR [Suspect]
     Active Substance: LOPINAVIR\RITONAVIR
     Indication: HIV INFECTION
     Dosage: 300/75 MG/M2
     Route: 048
     Dates: start: 20170413, end: 20171116
  2. NEVIRAPINE. [Concomitant]
     Active Substance: NEVIRAPINE
     Indication: HIV INFECTION
     Route: 048
     Dates: start: 20170329, end: 20171109

REACTIONS (1)
  - Precocious puberty [Recovered/Resolved]

NARRATIVE: CASE EVENT DATE: 20171116
